FAERS Safety Report 25856836 (Version 1)
Quarter: 2025Q3

REPORT INFORMATION
  Report Type: Spontaneous
  Country: JP (occurrence: JP)
  Receive Date: 20250929
  Receipt Date: 20250929
  Transmission Date: 20251020
  Serious: Yes (Hospitalization, Other)
  Sender: MERCK SHARP & DOHME LLC
  Company Number: JP-009507513-2324603

PATIENT
  Age: 76 Year
  Sex: Male
  Weight: 60.5 kg

DRUGS (15)
  1. KEYTRUDA [Suspect]
     Active Substance: PEMBROLIZUMAB
     Indication: PD-L1 positive cancer
     Route: 041
     Dates: start: 20250528, end: 2025
  2. CISPLATIN [Suspect]
     Active Substance: CISPLATIN
     Indication: Squamous cell carcinoma of lung
     Dates: start: 20250528, end: 2025
  3. GEMCITABINE HYDROCHLORIDE [Suspect]
     Active Substance: GEMCITABINE HYDROCHLORIDE
     Indication: Squamous cell carcinoma of lung
     Dates: start: 20250528, end: 2025
  4. AZILSARTAN KAMEDOXOMIL [Concomitant]
     Active Substance: AZILSARTAN KAMEDOXOMIL
  5. METILDIGOXIN [Concomitant]
     Active Substance: METILDIGOXIN
  6. XARELTO [Concomitant]
     Active Substance: RIVAROXABAN
  7. EPLERENONE [Concomitant]
     Active Substance: EPLERENONE
  8. FEBUXOSTAT [Concomitant]
     Active Substance: FEBUXOSTAT
  9. ANORO ELLIPTA [Concomitant]
     Active Substance: UMECLIDINIUM BROMIDE\VILANTEROL TRIFENATATE
  10. PREDONINE [Concomitant]
     Active Substance: PREDNISOLONE
  11. AMLODIPINE [Concomitant]
     Active Substance: AMLODIPINE BESYLATE
  12. AZOSEMIDE [Concomitant]
     Active Substance: AZOSEMIDE
  13. RAMELTEON [Concomitant]
     Active Substance: RAMELTEON
  14. TRAZODONE [Concomitant]
     Active Substance: TRAZODONE HYDROCHLORIDE
  15. DAYVIGO [Concomitant]
     Active Substance: LEMBOREXANT

REACTIONS (20)
  - Immune thrombocytopenia [Unknown]
  - Haemophagocytic lymphohistiocytosis [Not Recovered/Not Resolved]
  - Gastrointestinal angiodysplasia [Unknown]
  - Pyrexia [Unknown]
  - Haemorrhage subcutaneous [Recovering/Resolving]
  - Disseminated intravascular coagulation [Recovering/Resolving]
  - Pleural effusion [Unknown]
  - Fall [Unknown]
  - Contusion [Unknown]
  - Skin laceration [Unknown]
  - Chronic gastritis [Unknown]
  - Anaemia [Unknown]
  - Renal impairment [Unknown]
  - Cytokine release syndrome [Unknown]
  - Interleukin-2 receptor increased [Unknown]
  - Traumatic haemorrhage [Unknown]
  - Gastric haemorrhage [Unknown]
  - White blood cell count increased [Unknown]
  - Platelet count decreased [Unknown]
  - Serum ferritin increased [Unknown]

NARRATIVE: CASE EVENT DATE: 20250619
